FAERS Safety Report 4930935-2 (Version None)
Quarter: 2006Q1

REPORT INFORMATION
  Report Type: 
  Country: None (occurrence: None)
  Receive Date: 20060227
  Receipt Date: 20060210
  Transmission Date: 20060701
  Serious: Yes (Other)
  Sender: FDA-Public Use
  Company Number: 002#2#2006-00035

PATIENT
  Sex: Male

DRUGS (1)
  1. NULEV-0.125MG-ORALLY-DISINTEGRATING-TABLET (HYOSCYAMINE SULFATE) [Suspect]
     Dosage: .125MG, ORAL
     Route: 048

REACTIONS (2)
  - GASTRIC DISORDER [None]
  - LARGE INTESTINE PERFORATION [None]
